FAERS Safety Report 7754864-4 (Version None)
Quarter: 2011Q3

REPORT INFORMATION
  Report Type: 
  Country: None (occurrence: None)
  Receive Date: 20110916
  Receipt Date: 20110907
  Transmission Date: 20111222
  Serious: No
  Sender: FDA-Public Use
  Company Number: US-BIOGENIDEC-2011BI034524

PATIENT
  Age: 53 Year
  Sex: Male

DRUGS (2)
  1. AVONEX [Concomitant]
     Indication: MULTIPLE SCLEROSIS
     Route: 030
     Dates: start: 20090408
  2. TYSABRI [Suspect]
     Indication: MULTIPLE SCLEROSIS
     Route: 042
     Dates: start: 20110812

REACTIONS (2)
  - FAECES HARD [None]
  - GAIT DISTURBANCE [None]
